FAERS Safety Report 4848470-9 (Version None)
Quarter: 2005Q4

REPORT INFORMATION
  Report Type: 
  Country: None (occurrence: None)
  Receive Date: 20051208
  Receipt Date: 20051108
  Transmission Date: 20060501
  Serious: Yes (Other)
  Sender: FDA-Public Use
  Company Number: FR-AVENTIS-200513722FR

PATIENT
  Age: 40 Year
  Sex: Female

DRUGS (11)
  1. KETEK [Suspect]
     Indication: SINUSITIS
     Route: 048
     Dates: start: 20051103, end: 20051105
  2. CELESTENE [Concomitant]
     Indication: SINUSITIS
     Dates: start: 20051103
  3. AVANDIA [Concomitant]
     Route: 048
     Dates: start: 20050801
  4. DITROPAN [Concomitant]
     Route: 048
     Dates: start: 20040101
  5. AERIUS [Concomitant]
     Route: 048
  6. STILNOX [Concomitant]
     Route: 048
  7. ART 50 [Concomitant]
  8. CRESTOR [Concomitant]
     Route: 048
     Dates: start: 20020101
  9. SULFALENE [Concomitant]
     Route: 048
  10. LUTENYL [Concomitant]
     Route: 048
  11. SPASFON [Concomitant]
     Indication: ENDOMETRIOSIS

REACTIONS (3)
  - MYDRIASIS [None]
  - VISION BLURRED [None]
  - VISUAL ACUITY REDUCED [None]
